FAERS Safety Report 7556998-6 (Version None)
Quarter: 2011Q2

REPORT INFORMATION
  Report Type: 
  Country: None (occurrence: None)
  Receive Date: 20110620
  Receipt Date: 20110615
  Transmission Date: 20111010
  Serious: Yes (Life-Threatening, Hospitalization, Other)
  Sender: FDA-Public Use
  Company Number: PHHY2011PL52958

PATIENT
  Sex: Female
  Weight: 61 kg

DRUGS (5)
  1. MYFORTIC [Suspect]
     Dosage: 360 MG, DAILY
     Route: 048
  2. MYFORTIC [Suspect]
     Indication: RENAL TRANSPLANT
     Dosage: 1080 MG, DAILY
     Route: 048
     Dates: start: 20100930
  3. ENCORTON [Concomitant]
     Indication: RENAL TRANSPLANT
     Dosage: 20 MG,
     Dates: start: 20100930
  4. NEORAL [Concomitant]
     Indication: RENAL TRANSPLANT
     Dosage: 300 MG,
     Route: 048
     Dates: start: 20100930
  5. CERTICAN [Concomitant]

REACTIONS (7)
  - URINARY TRACT INFECTION [None]
  - HEPATIC LESION [None]
  - MEDIASTINAL DISORDER [None]
  - DIARRHOEA [None]
  - HYPONATRAEMIA [None]
  - VOMITING [None]
  - LUNG NEOPLASM [None]
